FAERS Safety Report 4376104-9 (Version None)
Quarter: 2004Q2

REPORT INFORMATION
  Report Type: 
  Country: None (occurrence: None)
  Receive Date: 20040611
  Receipt Date: 20040601
  Transmission Date: 20050107
  Serious: Yes (Other)
  Sender: FDA-Public Use
  Company Number: GB-GLAXOSMITHKLINE-B0334526A

PATIENT
  Sex: Male

DRUGS (1)
  1. SEROXAT [Suspect]
     Route: 065

REACTIONS (7)
  - AGITATION [None]
  - DRUG WITHDRAWAL SYNDROME [None]
  - FEELING ABNORMAL [None]
  - NIGHTMARE [None]
  - PSYCHIATRIC SYMPTOM [None]
  - SELF-INJURIOUS IDEATION [None]
  - SOCIAL PROBLEM [None]
